FAERS Safety Report 7437500-6 (Version None)
Quarter: 2011Q2

REPORT INFORMATION
  Report Type: 
  Country: None (occurrence: None)
  Receive Date: 20110426
  Receipt Date: 20110419
  Transmission Date: 20111010
  Serious: Yes (Other)
  Sender: FDA-Public Use
  Company Number: US-SANOFI-AVENTIS-2011SA013487

PATIENT
  Age: 80 Year
  Sex: Female
  Weight: 61 kg

DRUGS (9)
  1. POTASSIUM [Concomitant]
  2. ACETAMINOPHEN [Concomitant]
  3. IBANDRONATE SODIUM [Concomitant]
     Dosage: EVERY 3 MONTHS
     Route: 051
     Dates: start: 20100801
  4. MULTI-VITAMINS [Concomitant]
     Dates: start: 20070101
  5. HYDROXYZINE [Concomitant]
  6. TIAZAC [Concomitant]
     Dates: start: 20090701
  7. COUMADIN [Concomitant]
     Dates: start: 20060101
  8. MULTAQ [Suspect]
     Indication: ATRIAL FIBRILLATION
     Route: 048
     Dates: start: 20100831, end: 20110228
  9. ALDACTONE [Concomitant]
     Dates: start: 20060101

REACTIONS (2)
  - SKIN LESION [None]
  - CUTANEOUS LUPUS ERYTHEMATOSUS [None]
